FAERS Safety Report 4613872-2 (Version None)
Quarter: 2005Q1

REPORT INFORMATION
  Report Type: 
  Country: None (occurrence: None)
  Receive Date: 20050321
  Receipt Date: 20050318
  Transmission Date: 20050727
  Serious: Yes (Other)
  Sender: FDA-Public Use
  Company Number: PHBS2005JP03831

PATIENT
  Age: 52 Year
  Sex: Male

DRUGS (3)
  1. STARSIS [Suspect]
     Indication: DIABETES MELLITUS
     Dosage: 270 MG, QD
     Route: 048
     Dates: start: 20030705
  2. LIPANTIL [Concomitant]
     Dosage: 150 MG/DAY
     Dates: start: 20040821
  3. CLARITIN [Concomitant]
     Dosage: 10 MG/DAY
     Dates: start: 20050219

REACTIONS (1)
  - HYPERKALAEMIA [None]
